FAERS Safety Report 25079387 (Version 1)
Quarter: 2025Q1

REPORT INFORMATION
  Report Type: Spontaneous
  Country: JP (occurrence: JP)
  Receive Date: 20250314
  Receipt Date: 20250314
  Transmission Date: 20250409
  Serious: Yes (Other)
  Sender: AKEBIA THERAPEUTICS
  Company Number: JP-IQVIA-JT2025JP000063

PATIENT
  Age: 81 Year
  Sex: Male
  Weight: 53.3 kg

DRUGS (12)
  1. FERRIC CITRATE ANHYDROUS [Suspect]
     Active Substance: FERRIC CITRATE ANHYDROUS
     Indication: Product used for unknown indication
     Dosage: 250 MILLIGRAM, BID
     Route: 048
  2. ENARODUSTAT [Suspect]
     Active Substance: ENARODUSTAT
     Indication: Nephrogenic anaemia
     Dosage: 4 MILLIGRAM, QD
     Route: 048
     Dates: start: 20240713, end: 20241108
  3. ENTRESTO [Concomitant]
     Active Substance: SACUBITRIL\VALSARTAN
     Indication: Cardiac failure chronic
     Dosage: 400 MILLIGRAM, QD
     Route: 048
     Dates: end: 20240903
  4. ENTRESTO [Concomitant]
     Active Substance: SACUBITRIL\VALSARTAN
     Dosage: 200 MILLIGRAM, QD
     Route: 048
     Dates: start: 20240904
  5. CILNIDIPINE [Concomitant]
     Active Substance: CILNIDIPINE
     Indication: Hypertension
     Dosage: 20 MILLIGRAM, QD
     Route: 048
  6. ROCALTROL [Concomitant]
     Active Substance: CALCITRIOL
     Indication: Nephrosclerosis
     Dosage: 0.5 MICROGRAM, 3 TIMES/WK
     Route: 042
     Dates: start: 20240725
  7. ROCALTROL [Concomitant]
     Active Substance: CALCITRIOL
     Indication: Hyperparathyroidism secondary
  8. VONOPRAZAN FUMARATE [Concomitant]
     Active Substance: VONOPRAZAN FUMARATE
     Indication: Chronic gastritis
     Dosage: 10 MILLIGRAM, QD
     Route: 048
  9. DIART [Concomitant]
     Indication: Oedema due to renal disease
     Dosage: 60 MILLIGRAM, QD
     Route: 048
  10. TORSEMIDE [Concomitant]
     Active Substance: TORSEMIDE
     Indication: Nephrosclerosis
     Dosage: 8 MILLIGRAM, QD
     Route: 048
  11. TORSEMIDE [Concomitant]
     Active Substance: TORSEMIDE
     Indication: Oedema due to renal disease
  12. HERBALS [Concomitant]
     Active Substance: HERBALS
     Indication: Constipation
     Route: 048

REACTIONS (1)
  - Prostate cancer [Recovering/Resolving]

NARRATIVE: CASE EVENT DATE: 20241105
